FAERS Safety Report 4748768-9 (Version None)
Quarter: 2005Q3

REPORT INFORMATION
  Report Type: 
  Country: None (occurrence: None)
  Receive Date: 20050812
  Receipt Date: 20050617
  Transmission Date: 20060218
  Serious: Yes (Other)
  Sender: FDA-Public Use
  Company Number: 408324

PATIENT
  Age: 55 Year
  Sex: Female

DRUGS (8)
  1. PEGASYS [Suspect]
     Indication: HEPATITIS C VIRUS
     Dosage: 1 PER WEEK
     Route: 065
     Dates: start: 20041029, end: 20050613
  2. COPEGUS [Suspect]
     Indication: HEPATITIS C VIRUS
     Dosage: 1200 MG DAILY ORAL
     Route: 048
     Dates: start: 20041029, end: 20050618
  3. THYROID TAB [Concomitant]
  4. EVISTA [Concomitant]
  5. ACYCLOVIR [Concomitant]
  6. BENADRYL [Concomitant]
  7. PREDNISONE [Concomitant]
  8. EPIPEN [Concomitant]

REACTIONS (7)
  - ANAPHYLACTIC REACTION [None]
  - DYSPNOEA [None]
  - HAEMOGLOBIN DECREASED [None]
  - MIGRAINE WITH AURA [None]
  - PRURITUS [None]
  - URTICARIA [None]
  - WHITE BLOOD CELL COUNT DECREASED [None]
